FAERS Safety Report 9208347 (Version 1)
Quarter: 2013Q2

REPORT INFORMATION
  Report Type: Spontaneous
  Country: CN (occurrence: CN)
  Receive Date: 20130404
  Receipt Date: 20130404
  Transmission Date: 20140414
  Serious: Yes (Other)
  Sender: FDA-Public Use
  Company Number: CN-ABBOTT-13X-035-1071664-00

PATIENT
  Age: 31 Year
  Sex: Male

DRUGS (2)
  1. DEPAKINE CHRONO [Suspect]
     Indication: EPILEPSY
     Dosage: 500 MILLIGRAM; TWICE A DAY
     Route: 048
     Dates: start: 2011
  2. LAMOTRIGINE [Suspect]
     Indication: EPILEPSY
     Route: 048
     Dates: start: 2011

REACTIONS (4)
  - Foaming at mouth [Recovered/Resolved]
  - Convulsion [Recovered/Resolved]
  - Muscle twitching [Recovered/Resolved]
  - Eye movement disorder [Recovered/Resolved]
